FAERS Safety Report 9557807 (Version 2)
Quarter: 2013Q4

REPORT INFORMATION
  Report Type: Spontaneous
  Country: US (occurrence: US)
  Receive Date: 20130926
  Receipt Date: 20131024
  Transmission Date: 20140711
  Serious: No
  Sender: FDA-Public Use
  Company Number: US-TEVA-434633USA

PATIENT
  Sex: Female

DRUGS (3)
  1. PARAGARD 380A [Suspect]
     Indication: CONTRACEPTION
     Route: 015
  2. XANAX [Concomitant]
     Dosage: 0.5 MG, FREQUENCY NOT PROVIDED
  3. LEXAPRO [Concomitant]
     Dosage: 10 MG, FREQUENCY NOT PROVIDED

REACTIONS (3)
  - Pain [Recovered/Resolved]
  - Discomfort [Recovered/Resolved]
  - Complication of device insertion [Recovered/Resolved]
